FAERS Safety Report 8798907 (Version 7)
Quarter: 2014Q3

REPORT INFORMATION
  Report Type: Spontaneous
  Country: US (occurrence: US)
  Receive Date: 20120920
  Receipt Date: 20140714
  Transmission Date: 20150326
  Serious: Yes (Hospitalization, Other)
  Sender: FDA-Public Use
  Company Number: US-PFIZER INC-2012232101

PATIENT
  Age: 55 Year
  Sex: Female
  Weight: 61.22 kg

DRUGS (7)
  1. BUSPAR [Concomitant]
     Active Substance: BUSPIRONE HYDROCHLORIDE
     Dosage: UNK
  2. LYRICA [Suspect]
     Active Substance: PREGABALIN
     Dosage: UNK
     Route: 048
  3. HYDROCODONE [Concomitant]
     Active Substance: HYDROCODONE
     Indication: PAIN
  4. KLONOPIN [Concomitant]
     Active Substance: CLONAZEPAM
     Dosage: UNK, 3X/DAY
  5. LYRICA [Suspect]
     Active Substance: PREGABALIN
     Indication: FIBROMYALGIA
     Dosage: 150 MG, 3X/DAY
     Route: 048
     Dates: start: 20110712, end: 20120911
  6. ALCOHOL. [Concomitant]
     Active Substance: ALCOHOL
     Dosage: UNK
  7. HYDROCODONE [Concomitant]
     Active Substance: HYDROCODONE
     Indication: ARTHRITIS
     Dosage: 10 MG, UNK

REACTIONS (31)
  - Optic nerve disorder [Unknown]
  - Visual acuity reduced [Unknown]
  - Blood pressure decreased [Unknown]
  - Weight increased [Unknown]
  - Pain [Unknown]
  - Back pain [Unknown]
  - Withdrawal syndrome [Unknown]
  - Tremor [Unknown]
  - Limb discomfort [Unknown]
  - Suicide attempt [Unknown]
  - Feeling cold [Unknown]
  - Weight decreased [Unknown]
  - Bone pain [Unknown]
  - Insomnia [Unknown]
  - Hot flush [Unknown]
  - Stress [Unknown]
  - Thinking abnormal [Unknown]
  - Pain in extremity [Unknown]
  - Decreased appetite [Unknown]
  - Loss of consciousness [Unknown]
  - Convulsion [Unknown]
  - Suicidal ideation [Unknown]
  - Depression [Unknown]
  - Intervertebral disc degeneration [Unknown]
  - Condition aggravated [Unknown]
  - Bone disorder [Unknown]
  - White blood cell disorder [Unknown]
  - Dehydration [Unknown]
  - Emotional disorder [Unknown]
  - Breast enlargement [Unknown]
  - Dizziness [Unknown]

NARRATIVE: CASE EVENT DATE: 20120911
